FAERS Safety Report 15236365 (Version 1)
Quarter: 2018Q3

REPORT INFORMATION
  Report Type: Spontaneous
  Country: PL (occurrence: PL)
  Receive Date: 20180803
  Receipt Date: 20180803
  Transmission Date: 20181010
  Serious: Yes (Other)
  Sender: FDA-Public Use
  Company Number: PL-BAUSCH-BL-2018-020849

PATIENT
  Age: 52 Year
  Sex: Female

DRUGS (2)
  1. PEGINTERFERON ALFA 2B [Suspect]
     Active Substance: PEGINTERFERON ALFA-2B
     Indication: CRYOGLOBULINAEMIA
     Dosage: 20 WEEKS
     Route: 065
     Dates: start: 201011, end: 2011
  2. RIBAVIRIN. [Suspect]
     Active Substance: RIBAVIRIN
     Indication: CRYOGLOBULINAEMIA
     Dosage: 20 WEEKS
     Route: 065
     Dates: start: 201011, end: 2011

REACTIONS (2)
  - Visual impairment [Recovering/Resolving]
  - Retinopathy [Recovering/Resolving]

NARRATIVE: CASE EVENT DATE: 2011
